FAERS Safety Report 9400205 (Version 3)
Quarter: 2013Q3

REPORT INFORMATION
  Report Type: Report from Study
  Country: US (occurrence: US)
  Receive Date: 20130715
  Receipt Date: 20130829
  Transmission Date: 20140515
  Serious: Yes (Hospitalization)
  Sender: FDA-Public Use
  Company Number: US-ROCHE-1248536

PATIENT
  Age: 62 Year
  Sex: Male

DRUGS (3)
  1. ERLOTINIB [Suspect]
     Indication: HEPATOCELLULAR CARCINOMA
     Route: 065
     Dates: end: 20130805
  2. BEVACIZUMAB [Suspect]
     Indication: HEPATOCELLULAR CARCINOMA
     Route: 065
     Dates: end: 20130805
  3. NADOLOL [Concomitant]
     Route: 065

REACTIONS (2)
  - Oesophageal varices haemorrhage [Unknown]
  - Varices oesophageal [Unknown]
